FAERS Safety Report 8775485 (Version 2)
Quarter: 2012Q4

REPORT INFORMATION
  Report Type: 
  Country: US (occurrence: US)
  Receive Date: 20120909
  Receipt Date: 20120923
  Transmission Date: 20130627
  Serious: Yes (Death)
  Sender: FDA-Public Use
  Company Number: US-ABBOTT-12P-163-0976413-00

PATIENT
  Age: 74 Year
  Sex: Male

DRUGS (2)
  1. KALETRA (ABBOTT) [Suspect]
     Indication: PRODUCT USED FOR UNKNOWN INDICATION
     Dosage: 200/50
     Dates: start: 20091216
  2. TRUVADA (NON-ABBOTT) [Concomitant]
     Indication: PRODUCT USED FOR UNKNOWN INDICATION

REACTIONS (1)
  - Cardio-respiratory arrest [Fatal]
